FAERS Safety Report 4456066-6 (Version None)
Quarter: 2004Q3

REPORT INFORMATION
  Report Type: 
  Country: None (occurrence: None)
  Receive Date: 20040922
  Receipt Date: 20040914
  Transmission Date: 20050211
  Serious: Yes (Hospitalization)
  Sender: FDA-Public Use
  Company Number: JP-ABBOTT-04P-087-0273232-00

PATIENT
  Age: 77 Year
  Sex: Female

DRUGS (4)
  1. VASOLAN [Interacting]
     Indication: ATRIAL FIBRILLATION
     Route: 048
     Dates: end: 20040906
  2. CLARITH [Suspect]
     Indication: INFECTION
     Route: 048
     Dates: start: 20040903
  3. PIRMENOL HYDROCHLORIDE [Concomitant]
     Indication: DRUG USE FOR UNKNOWN INDICATION
     Route: 048
     Dates: start: 20000101, end: 20040906
  4. VALSARTAN [Concomitant]
     Indication: HYPERTENSION
     Route: 048
     Dates: start: 20020101, end: 20040906

REACTIONS (5)
  - ATRIAL FLUTTER [None]
  - AV DISSOCIATION [None]
  - DRUG INTERACTION [None]
  - GENERAL PHYSICAL CONDITION ABNORMAL [None]
  - SINUS BRADYCARDIA [None]
